FAERS Safety Report 6836583-1 (Version None)
Quarter: 2010Q3

REPORT INFORMATION
  Report Type: 
  Country: None (occurrence: None)
  Receive Date: 20100708
  Receipt Date: 20100623
  Transmission Date: 20110219
  Serious: Yes (Other)
  Sender: FDA-Public Use
  Company Number: 20100293

PATIENT
  Age: 52 Year
  Sex: Female

DRUGS (2)
  1. CYANOCOBALAMIN [Suspect]
     Indication: ANAEMIA
     Dosage: 1000 MCG WEEKLY SUBCUTANEOUS
     Route: 058
     Dates: start: 20100601, end: 20100601
  2. CYANOCOBALAMIN [Suspect]
     Indication: VITAMIN B12 DEFICIENCY
     Dosage: 1000 MCG WEEKLY SUBCUTANEOUS
     Route: 058
     Dates: start: 20100601, end: 20100601

REACTIONS (2)
  - CELLULITIS [None]
  - SECRETION DISCHARGE [None]
